FAERS Safety Report 10005906 (Version 1)
Quarter: 2014Q1

REPORT INFORMATION
  Report Type: Spontaneous
  Country: US (occurrence: US)
  Receive Date: 20140313
  Receipt Date: 20140313
  Transmission Date: 20141002
  Serious: No
  Sender: FDA-Public Use
  Company Number: US-009507513-1403USA003030

PATIENT
  Sex: Male

DRUGS (1)
  1. DULERA [Suspect]
     Indication: ASTHMA
     Dosage: 200MICROGRAM/5MICROGRAM, UNK
     Route: 055

REACTIONS (2)
  - Obstructive airways disorder [Unknown]
  - Chest discomfort [Unknown]
